FAERS Safety Report 4838472-0 (Version None)
Quarter: 2005Q4

REPORT INFORMATION
  Report Type: 
  Country: None (occurrence: None)
  Receive Date: 20051129
  Receipt Date: 20051118
  Transmission Date: 20060501
  Serious: Yes (Death, Hospitalization)
  Sender: FDA-Public Use
  Company Number: PHRM2005FR02992

PATIENT
  Age: 42 Year
  Sex: Male

DRUGS (3)
  1. FRACTAL [Suspect]
     Indication: HYPERCHOLESTEROLAEMIA
     Dosage: 40 MG, QD
     Route: 048
     Dates: start: 20041216, end: 20041221
  2. SOLU-MEDROL [Concomitant]
     Indication: ERYTHEMA
     Dosage: UNK, UNK
     Route: 048
  3. TAHOR [Suspect]
     Indication: HYPERCHOLESTEROLAEMIA
     Dosage: 40 MG, QD
     Route: 048
     Dates: start: 20041206, end: 20041215

REACTIONS (34)
  - ACUTE RESPIRATORY DISTRESS SYNDROME [None]
  - ALOPECIA [None]
  - ANTINUCLEAR ANTIBODY POSITIVE [None]
  - ARTHRALGIA [None]
  - ARTHRITIS [None]
  - COMPLEMENT FACTOR DECREASED [None]
  - CYTOLYTIC HEPATITIS [None]
  - DERMATOMYOSITIS [None]
  - DYSPNOEA [None]
  - FACE OEDEMA [None]
  - FLUID REPLACEMENT [None]
  - GASTRIC HAEMORRHAGE [None]
  - GENERAL PHYSICAL HEALTH DETERIORATION [None]
  - HAEMATEMESIS [None]
  - HAEMODIALYSIS [None]
  - HAEMOGLOBIN DECREASED [None]
  - HEPATIC ENZYME INCREASED [None]
  - HYPOXIA [None]
  - INTERSTITIAL LUNG DISEASE [None]
  - LIFE SUPPORT [None]
  - MUSCLE ATROPHY [None]
  - MUSCULAR WEAKNESS [None]
  - MYALGIA [None]
  - NAUSEA [None]
  - OXYGEN SATURATION DECREASED [None]
  - PNEUMOCYSTIS JIROVECI PNEUMONIA [None]
  - RASH ERYTHEMATOUS [None]
  - RENAL IMPAIRMENT [None]
  - SEPTIC SHOCK [None]
  - SHOCK [None]
  - SMOOTH MUSCLE ANTIBODY POSITIVE [None]
  - TOTAL LUNG CAPACITY DECREASED [None]
  - WEIGHT DECREASED [None]
  - WHOLE BLOOD TRANSFUSION [None]
